FAERS Safety Report 7903043-6 (Version None)
Quarter: 2011Q4

REPORT INFORMATION
  Report Type: 
  Country: None (occurrence: None)
  Receive Date: 20111103
  Receipt Date: 20111024
  Transmission Date: 20120403
  Serious: Yes (Other)
  Sender: FDA-Public Use
  Company Number: 2011SP050106

PATIENT
  Sex: Female

DRUGS (4)
  1. BETAMETHASONE [Suspect]
     Indication: AMYLOIDOSIS
  2. ETOPOSIDE [Suspect]
     Indication: AMYLOIDOSIS
  3. ADRIAMYCIN PFS [Suspect]
     Indication: AMYLOIDOSIS
  4. CYCLOPHOSPHAMIDE [Suspect]
     Indication: AMYLOIDOSIS

REACTIONS (1)
  - FEBRILE NEUTROPENIA [None]
